FAERS Safety Report 4390720-X (Version None)
Quarter: 2004Q2

REPORT INFORMATION
  Report Type: 
  Country: None (occurrence: None)
  Receive Date: 20040629
  Receipt Date: 20040615
  Transmission Date: 20050107
  Serious: Yes (Hospitalization, Other)
  Sender: FDA-Public Use
  Company Number: USA-2004-0015610

PATIENT
  Age: 61 Year
  Sex: Male

DRUGS (4)
  1. OXYCONTIN [Suspect]
     Indication: PAIN
     Dosage: 120 MG, TID
  2. DURAGESIC [Concomitant]
  3. PROPAMINE [Concomitant]
  4. EFFEXOR [Concomitant]

REACTIONS (5)
  - COMA [None]
  - CONVULSION [None]
  - DRUG DEPENDENCE [None]
  - DRUG WITHDRAWAL SYNDROME [None]
  - TREMOR [None]
